FAERS Safety Report 6534333-X (Version None)
Quarter: 2010Q1

REPORT INFORMATION
  Report Type: 
  Country: None (occurrence: None)
  Receive Date: 20100112
  Receipt Date: 20091207
  Transmission Date: 20100710
  Serious: No
  Sender: FDA-Public Use
  Company Number: US-BAYER-200942361NA

PATIENT
  Age: 27 Year
  Sex: Female
  Weight: 82 kg

DRUGS (4)
  1. MIRENA [Suspect]
     Indication: CONTRACEPTION
     Dosage: CONTINUOUS
     Route: 015
     Dates: start: 20090609
  2. TYLENOL (CAPLET) [Concomitant]
     Indication: HEADACHE
     Dosage: UNKNOWN DOSAGE
  3. MOTRIN [Concomitant]
     Indication: HEADACHE
     Dosage: CONTINUOUS
     Route: 015
     Dates: start: 20090601
  4. ADVIL [Concomitant]
     Indication: HEADACHE

REACTIONS (3)
  - BREAST TENDERNESS [None]
  - HEADACHE [None]
  - MENSTRUATION IRREGULAR [None]
